FAERS Safety Report 14482910 (Version 1)
Quarter: 2018Q1

REPORT INFORMATION
  Report Type: Spontaneous
  Country: DE (occurrence: DE)
  Receive Date: 20180203
  Receipt Date: 20180203
  Transmission Date: 20180509
  Serious: Yes (Life-Threatening, Hospitalization)
  Sender: FDA-Public Use
  Company Number: DE-AUROBINDO-AUR-APL-2018-004533

PATIENT
  Age: 46 Year
  Sex: Female
  Weight: 60 kg

DRUGS (1)
  1. CEFUROXIME. [Suspect]
     Active Substance: CEFUROXIME
     Indication: SINUSITIS
     Dosage: 500 MG, DAILY
     Route: 048
     Dates: end: 20171211

REACTIONS (2)
  - Anaphylactic shock [Not Recovered/Not Resolved]
  - Asthma [Not Recovered/Not Resolved]

NARRATIVE: CASE EVENT DATE: 20171211
